FAERS Safety Report 9835594 (Version 1)
Quarter: 2014Q1

REPORT INFORMATION
  Report Type: Spontaneous
  Country: CA (occurrence: CA)
  Receive Date: 20140122
  Receipt Date: 20140122
  Transmission Date: 20141002
  Serious: Yes (Hospitalization, Other)
  Sender: FDA-Public Use
  Company Number: CA-ASTRAZENECA-2014SE03241

PATIENT
  Age: 34 Year
  Sex: Female
  Weight: 101 kg

DRUGS (8)
  1. LOSEC [Suspect]
     Route: 048
  2. AMOXICILLIN [Concomitant]
  3. CALCIUM [Concomitant]
  4. CLARITHROMYCIN [Concomitant]
  5. IMMUNE GLOBULIN INTRAVENOUS (HUMAN) [Concomitant]
     Route: 042
  6. PREDNISONE [Concomitant]
  7. PREGVIT [Concomitant]
  8. VITAMIN D [Concomitant]

REACTIONS (3)
  - Exposure during pregnancy [Unknown]
  - Hyperemesis gravidarum [Not Recovered/Not Resolved]
  - Tubulointerstitial nephritis [Not Recovered/Not Resolved]
